FAERS Safety Report 22982315 (Version 2)
Quarter: 2025Q1

REPORT INFORMATION
  Report Type: Spontaneous
  Country: BR (occurrence: BR)
  Receive Date: 20230926
  Receipt Date: 20250215
  Transmission Date: 20250409
  Serious: Yes (Hospitalization, Other)
  Sender: CELLTRION
  Company Number: BR-CELLTRION INC.-2023BR018494

PATIENT

DRUGS (7)
  1. INFLIXIMAB [Suspect]
     Active Substance: INFLIXIMAB
     Indication: Ankylosing spondylitis
     Route: 042
     Dates: start: 20221003
  2. INFLIXIMAB [Suspect]
     Active Substance: INFLIXIMAB
     Route: 042
     Dates: start: 20230712
  3. INFLIXIMAB [Suspect]
     Active Substance: INFLIXIMAB
     Route: 042
     Dates: start: 20230920
  4. INFLIXIMAB [Suspect]
     Active Substance: INFLIXIMAB
     Route: 042
     Dates: start: 202412
  5. METHOTREXATE [Concomitant]
     Active Substance: METHOTREXATE
     Indication: Ankylosing spondylitis
     Dosage: SHE USES METHOTREXATE 2.5 MG, 4 TABLETS A WEEK ON FRIDAY, TO TREAT ANKYLOSING SPONDYLITIS, STARTING
     Route: 048
  6. FOLIC ACID [Concomitant]
     Active Substance: FOLIC ACID
     Indication: Ankylosing spondylitis
     Dosage: FOLIC ACID, 1 TABLET A WEEK, FOR ANKYLOSING SPONDYLITIS, STARTING IN 2017
     Route: 048
     Dates: start: 2017
  7. OMEPRAZOLE [Concomitant]
     Active Substance: OMEPRAZOLE
     Dosage: OMEPRAZOLE, 1 TABLET A WEEK ON THE SAME DAY SHE USES METROTEXATE, USED FOR GASTRIC PROTECTION
     Route: 048

REACTIONS (2)
  - Gallbladder disorder [Recovering/Resolving]
  - Intentional dose omission [Recovering/Resolving]

NARRATIVE: CASE EVENT DATE: 20230906
